FAERS Safety Report 5570166-9 (Version None)
Quarter: 2007Q4

REPORT INFORMATION
  Report Type: 
  Country: None (occurrence: None)
  Receive Date: 20071220
  Receipt Date: 20071210
  Transmission Date: 20080405
  Serious: Yes (Other)
  Sender: FDA-Public Use
  Company Number: CA-PFIZER INC-2007103376

PATIENT
  Age: 62 Year
  Sex: Female

DRUGS (1)
  1. REACTINE [Suspect]
     Dosage: DAILY DOSE:20MG
     Route: 048

REACTIONS (1)
  - WITHDRAWAL SYNDROME [None]
